FAERS Safety Report 9188111 (Version 2)
Quarter: 2013Q3

REPORT INFORMATION
  Report Type: Spontaneous
  Country: GR (occurrence: GR)
  Receive Date: 20130325
  Receipt Date: 20130701
  Transmission Date: 20140515
  Serious: Yes (Death)
  Sender: FDA-Public Use
  Company Number: GR-GLAXOSMITHKLINE-B0877422A

PATIENT
  Age: 60 Year
  Sex: Female

DRUGS (5)
  1. VOTRIENT [Suspect]
     Indication: SARCOMA
     Route: 065
  2. IFOSFAMIDE [Concomitant]
     Indication: RENAL CANCER
     Route: 065
  3. ANTHRACYCLINES [Concomitant]
     Indication: RENAL CANCER
     Route: 065
  4. GEMZAR [Concomitant]
     Indication: RENAL CANCER
     Route: 065
  5. TAXOTERE [Concomitant]
     Indication: RENAL CANCER
     Route: 065

REACTIONS (1)
  - Disease progression [Fatal]
